FAERS Safety Report 5217249-0 (Version None)
Quarter: 2006Q4

REPORT INFORMATION
  Report Type: 
  Country: None (occurrence: None)
  Receive Date: 20061130
  Receipt Date: 20060421
  Transmission Date: 20070319
  Serious: Yes (Hospitalization)
  Sender: FDA-Public Use
  Company Number: US_0509121909

PATIENT
  Age: 55 Year
  Sex: Male
  Weight: 89.4 kg

DRUGS (1)
  1. ZYPREXA [Suspect]
     Dosage: 25 MG, ORAL
     Route: 048
     Dates: start: 19980401, end: 20050101

REACTIONS (5)
  - BLOOD CHOLESTEROL ABNORMAL [None]
  - CHEST PAIN [None]
  - DIABETES MELLITUS [None]
  - HYPERTENSION [None]
  - PRESCRIBED OVERDOSE [None]
